FAERS Safety Report 10485571 (Version 2)
Quarter: 2014Q4

REPORT INFORMATION
  Report Type: Report from Study
  Country: CA (occurrence: CA)
  Receive Date: 20141001
  Receipt Date: 20141014
  Transmission Date: 20150528
  Serious: Yes (Other)
  Sender: FDA-Public Use
  Company Number: CA-AMGEN-CANSP2014073685

PATIENT
  Age: 72 Year
  Sex: Female
  Weight: 47.62 kg

DRUGS (2)
  1. NPLATE [Suspect]
     Active Substance: ROMIPLOSTIM
     Indication: IMMUNE THROMBOCYTOPENIC PURPURA
     Dosage: UNK
     Route: 065
     Dates: start: 20140506
  2. NPLATE [Suspect]
     Active Substance: ROMIPLOSTIM
     Route: 065

REACTIONS (4)
  - Vulvectomy [Unknown]
  - Urinary tract infection [Unknown]
  - Haemorrhage [Recovered/Resolved]
  - Post procedural haemorrhage [Recovered/Resolved]

NARRATIVE: CASE EVENT DATE: 201409
